FAERS Safety Report 8962120 (Version 1)
Quarter: 2012Q4

REPORT INFORMATION
  Report Type: 
  Country: US (occurrence: US)
  Receive Date: 20121212
  Receipt Date: 20121212
  Transmission Date: 20130627
  Serious: Yes (Disabling)
  Sender: FDA-Public Use
  Company Number: US-PFIZER INC-2012308553

PATIENT
  Age: 64 Year
  Sex: Female
  Weight: 46 kg

DRUGS (2)
  1. PREMPRO [Suspect]
     Indication: HOT FLASHES
     Dosage: UNK
     Route: 048
  2. NEURONTIN [Suspect]
     Indication: BACK PAIN
     Dosage: 1200 mg, 3x/day, 4 capsules of 300mg three times a day
     Route: 048

REACTIONS (3)
  - Myocardial infarction [Unknown]
  - Chronic obstructive pulmonary disease [Unknown]
  - Road traffic accident [Unknown]
